FAERS Safety Report 4366684-1 (Version None)
Quarter: 2004Q2

REPORT INFORMATION
  Report Type: 
  Country: None (occurrence: None)
  Receive Date: 20040524
  Receipt Date: 20040511
  Transmission Date: 20050107
  Serious: Yes (Hospitalization)
  Sender: FDA-Public Use
  Company Number: 2004031592

PATIENT
  Age: 96 Year
  Sex: Female

DRUGS (7)
  1. NORVASC [Suspect]
     Indication: HYPERTENSION
     Dosage: 2.5 MG (1 IN 1 D), ORAL
     Route: 048
     Dates: start: 20031218, end: 20040319
  2. ARICEPT [Suspect]
     Indication: DEMENTIA ALZHEIMER'S TYPE
     Dosage: (3 MG, 1 IN 1 D, ) ORAL
     Route: 048
     Dates: start: 20040311, end: 20040318
  3. MELOXICAM (MELOXICAM) [Concomitant]
  4. PANTETHINE (PANTETHINE) [Concomitant]
  5. MAGNESIUM OXIDE (MAGNESIUM OXIDE) [Concomitant]
  6. FERROUS CITRATE [Concomitant]
  7. CLOTIAZEPAM (CLOTIAZEPAM) [Concomitant]

REACTIONS (14)
  - ABNORMAL BEHAVIOUR [None]
  - AGGRESSION [None]
  - ATRIOVENTRICULAR BLOCK FIRST DEGREE [None]
  - BLOOD PRESSURE DECREASED [None]
  - BRADYCARDIA [None]
  - CONDUCTION DISORDER [None]
  - DELIRIUM [None]
  - DEMENTIA [None]
  - HEART RATE DECREASED [None]
  - INFLUENZA [None]
  - INSOMNIA [None]
  - ISCHAEMIA [None]
  - LETHARGY [None]
  - PALLOR [None]
